FAERS Safety Report 18896134 (Version 2)
Quarter: 2021Q1

REPORT INFORMATION
  Report Type: Spontaneous
  Country: US (occurrence: US)
  Receive Date: 20210215
  Receipt Date: 20210224
  Transmission Date: 20210420
  Serious: No
  Sender: FDA-Public Use
  Company Number: US-SUNOVION-2021SUN000382

PATIENT
  Sex: Male

DRUGS (2)
  1. CYCLOBENZAPRINE. [Concomitant]
     Active Substance: CYCLOBENZAPRINE
  2. KYNMOBI [Suspect]
     Active Substance: APOMORPHINE HYDROCHLORIDE
     Indication: PARKINSON^S DISEASE
     Dosage: 25 MG
     Route: 060

REACTIONS (5)
  - Paraesthesia oral [Recovered/Resolved]
  - Gingival pain [Recovered/Resolved]
  - Oral discomfort [Recovered/Resolved]
  - Incorrect route of product administration [Unknown]
  - Lip swelling [Recovered/Resolved]
